FAERS Safety Report 7844031 (Version 6)
Quarter: 2013Q4

REPORT INFORMATION
  Report Type: Report from Study
  Country: JP (occurrence: JP)
  Receive Date: 20110307
  Receipt Date: 20131031
  Transmission Date: 20140711
  Serious: Yes (Death, Disabling, Other)
  Sender: FDA-Public Use
  Company Number: JP-BRISTOL-MYERS SQUIBB COMPANY-14984538

PATIENT
  Age: 73 Year
  Sex: Male
  Weight: 63 kg

DRUGS (4)
  1. SPRYCEL [Suspect]
     Indication: BLAST CRISIS IN MYELOGENOUS LEUKAEMIA
     Dosage: 13NOV09-16MAY10(70X2MG/D),17MAY-03JUN(70MG/D),04-17JUN(100MG),18JUN-26AUG(120MG),27AUG10-ONG(100MG)
     Route: 048
     Dates: start: 20091113, end: 20110829
  2. TASIGNA [Suspect]
     Indication: BLAST CRISIS IN MYELOGENOUS LEUKAEMIA
  3. URIEF [Concomitant]
     Indication: BENIGN PROSTATIC HYPERPLASIA
     Dosage: TABS
     Route: 048
     Dates: start: 20100827
  4. ONCOVIN [Concomitant]
     Route: 042
     Dates: start: 20110301, end: 20110306

REACTIONS (3)
  - Malignant neoplasm progression [Fatal]
  - Respiratory failure [Unknown]
  - Pleural effusion [Recovered/Resolved]
